FAERS Safety Report 22876786 (Version 2)
Quarter: 2023Q4

REPORT INFORMATION
  Report Type: Spontaneous
  Country: US (occurrence: US)
  Receive Date: 20230829
  Receipt Date: 20231019
  Transmission Date: 20240110
  Serious: No
  Sender: FDA-Public Use
  Company Number: US-PFIZER INC-202300285222

PATIENT
  Age: 62 Year
  Sex: Female

DRUGS (5)
  1. INLYTA [Suspect]
     Active Substance: AXITINIB
     Indication: Metastatic renal cell carcinoma
     Dosage: 5 MG, 2X/DAY
     Dates: start: 201911
  2. INLYTA [Suspect]
     Active Substance: AXITINIB
     Dosage: 2 MG, ALTERNATE DAY (ALTERNATING 2MG/2XDAY 1 MG 2XDAY)
  3. INLYTA [Suspect]
     Active Substance: AXITINIB
     Dosage: 1 MG, ALTERNATE DAY (ALTERNATING 2MG/2XDAY 1 MG 2XDAY)
  4. IRON [Concomitant]
     Active Substance: IRON
     Dosage: UNK
  5. KEYTRUDA [Concomitant]
     Active Substance: PEMBROLIZUMAB
     Dosage: UNK
     Dates: start: 201911, end: 202202

REACTIONS (3)
  - Frequent bowel movements [Not Recovered/Not Resolved]
  - Diarrhoea [Not Recovered/Not Resolved]
  - Off label use [Not Recovered/Not Resolved]
